FAERS Safety Report 6077591-0 (Version None)
Quarter: 2009Q1

REPORT INFORMATION
  Report Type: 
  Country: None (occurrence: None)
  Receive Date: 20090213
  Receipt Date: 20090202
  Transmission Date: 20090719
  Serious: Yes (Other)
  Sender: FDA-Public Use
  Company Number: GB-ELI_LILLY_AND_COMPANY-GB200902000315

PATIENT
  Age: 49 Year
  Sex: Male
  Weight: 164.5 kg

DRUGS (5)
  1. BYETTA [Suspect]
     Indication: TYPE 2 DIABETES MELLITUS
     Dosage: 10 UG, 2/D
     Route: 058
     Dates: start: 20080808, end: 20080101
  2. BYETTA [Suspect]
     Dosage: 5 UG, 2/D
     Route: 058
     Dates: start: 20080101, end: 20081215
  3. AMOXICILLIN [Concomitant]
     Indication: OTITIS MEDIA
     Dosage: 500 MG, 3/D
     Route: 048
     Dates: start: 20080930, end: 20081006
  4. METFORMIN HCL [Concomitant]
     Indication: DIABETES MELLITUS
     Dosage: 1 G, 3/D
     Route: 048
     Dates: start: 20040122
  5. PENICILLIN [Concomitant]
     Indication: URINARY TRACT INFECTION
     Dosage: 500 MG, 4/D
     Route: 048
     Dates: start: 20081103, end: 20081109

REACTIONS (1)
  - BLOOD PRESSURE INCREASED [None]
